FAERS Safety Report 20557525 (Version 3)
Quarter: 2022Q1

REPORT INFORMATION
  Report Type: Report from Study
  Country: JP (occurrence: None)
  Receive Date: 20220307
  Receipt Date: 20220328
  Transmission Date: 20220423
  Serious: Yes (Hospitalization)
  Sender: FDA-Public Use
  Company Number: JP-ROCHE-3035245

PATIENT
  Age: 65 Year
  Sex: Male
  Weight: 89 kg

DRUGS (8)
  1. ATEZOLIZUMAB [Suspect]
     Active Substance: ATEZOLIZUMAB
     Indication: Hepatocellular carcinoma
     Dosage: ON 1/FEB/2022, MOST RECENT DOSE OF ATEZOLIZUMAB PRIOR TO SAE
     Route: 041
     Dates: start: 20210817
  2. BEVACIZUMAB [Suspect]
     Active Substance: BEVACIZUMAB
     Indication: Hepatocellular carcinoma
     Dosage: ON 01/FEB/2022, MOST RECENT DOSE ADMINISTERED PRIOR TO SAE.
     Route: 042
     Dates: start: 20210817
  3. EPIRUBICIN [Suspect]
     Active Substance: EPIRUBICIN
     Indication: Hepatocellular carcinoma
     Route: 065
  4. VONOPRAZAN FUMARATE [Concomitant]
     Active Substance: VONOPRAZAN FUMARATE
     Dates: start: 20170520
  5. ECABET SODIUM [Concomitant]
     Active Substance: ECABET SODIUM
     Dates: start: 20210517
  6. JARDIANCE [Concomitant]
     Active Substance: EMPAGLIFLOZIN
     Dates: start: 20210720
  7. LEVOTHYROXINE SODIUM [Concomitant]
     Active Substance: LEVOTHYROXINE SODIUM
     Dates: start: 20220113
  8. LEVOTHYROXINE SODIUM [Concomitant]
     Active Substance: LEVOTHYROXINE SODIUM
     Dates: start: 20200202

REACTIONS (2)
  - Endocrine disorder [Recovering/Resolving]
  - Adrenocorticotropic hormone deficiency [Recovering/Resolving]

NARRATIVE: CASE EVENT DATE: 20220222
